FAERS Safety Report 7624150-1 (Version None)
Quarter: 2011Q3

REPORT INFORMATION
  Report Type: 
  Country: None (occurrence: None)
  Receive Date: 20110719
  Receipt Date: 20110719
  Transmission Date: 20111222
  Serious: Yes (Hospitalization)
  Sender: FDA-Public Use
  Company Number: None

PATIENT
  Sex: Female
  Weight: 37.19 kg

DRUGS (2)
  1. CARBOPLATIN [Suspect]
     Dosage: 455 MG
  2. PACLITAXEL [Suspect]
     Dosage: 226 MG

REACTIONS (24)
  - POST PROCEDURAL HAEMORRHAGE [None]
  - FUNGAL INFECTION [None]
  - SMALL INTESTINAL OBSTRUCTION [None]
  - INCISION SITE PAIN [None]
  - BLOOD ALKALINE PHOSPHATASE INCREASED [None]
  - GASTROINTESTINAL HYPOMOTILITY [None]
  - INFECTION [None]
  - NAUSEA [None]
  - CARBON DIOXIDE DECREASED [None]
  - ASPARTATE AMINOTRANSFERASE INCREASED [None]
  - DEEP VEIN THROMBOSIS [None]
  - BLOOD SODIUM DECREASED [None]
  - ALANINE AMINOTRANSFERASE INCREASED [None]
  - LIVER ABSCESS [None]
  - BLOOD PRESSURE DIASTOLIC DECREASED [None]
  - BLOOD ALBUMIN DECREASED [None]
  - BLOOD CALCIUM DECREASED [None]
  - BLOOD BILIRUBIN INCREASED [None]
  - BLOOD MAGNESIUM DECREASED [None]
  - TACHYCARDIA [None]
  - DIARRHOEA [None]
  - PELVIC VENOUS THROMBOSIS [None]
  - ANAEMIA [None]
  - THROMBOCYTOPENIA [None]
